FAERS Safety Report 7262618-0 (Version None)
Quarter: 2011Q1

REPORT INFORMATION
  Report Type: 
  Country: None (occurrence: None)
  Receive Date: 20110130
  Receipt Date: 20100913
  Transmission Date: 20110831
  Serious: No
  Sender: FDA-Public Use
  Company Number: US-ABBOTT-10P-163-0665828-00

PATIENT
  Age: 41 Year
  Sex: Female

DRUGS (7)
  1. IRON [Concomitant]
     Indication: BLOOD IRON DECREASED
  2. IRON [Concomitant]
  3. HUMIRA [Suspect]
     Indication: CROHN'S DISEASE
     Dates: start: 20100701
  4. MULTI-VITAMIN [Concomitant]
     Indication: PRODUCT USED FOR UNKNOWN INDICATION
  5. GLUCOSAMINE AND CHROMITIN [Concomitant]
     Indication: PRODUCT USED FOR UNKNOWN INDICATION
     Dosage: DAILY DOSE: 2
  6. DOXYCYCLINE [Suspect]
     Indication: INFECTION
     Dates: start: 20100903
  7. BENADRYL [Concomitant]
     Indication: HYPERSENSITIVITY
     Dosage: AT NIGHT

REACTIONS (9)
  - RASH PAPULAR [None]
  - NAUSEA [None]
  - VOMITING [None]
  - INCORRECT STORAGE OF DRUG [None]
  - INFECTION [None]
  - CHILLS [None]
  - PYREXIA [None]
  - DIARRHOEA [None]
  - INCORRECT DOSE ADMINISTERED [None]
